FAERS Safety Report 9032225 (Version 1)
Quarter: 2013Q1

REPORT INFORMATION
  Report Type: Spontaneous
  Country: US (occurrence: US)
  Receive Date: 20130122
  Receipt Date: 20130122
  Transmission Date: 20140127
  Serious: Yes (Hospitalization, Disabling, Other)
  Sender: FDA-Public Use
  Company Number: US-009507513-1201USA00875

PATIENT
  Sex: 0

DRUGS (4)
  1. FOSAMAX [Suspect]
     Indication: BONE DENSITY DECREASED
     Dosage: 35 MG, QW
     Route: 048
     Dates: end: 20080208
  2. FOSAMAX [Suspect]
     Dosage: 35 MG, QW
     Route: 048
     Dates: end: 2000
  3. FOSAMAX [Suspect]
     Dosage: 35 MG, QW
     Route: 048
     Dates: start: 2004, end: 2011
  4. FOSAMAX [Suspect]
     Indication: BONE DENSITY DECREASED
     Dosage: 35 MG, QW
     Route: 048
     Dates: start: 20060724, end: 20110602

REACTIONS (29)
  - Rotator cuff syndrome [Not Recovered/Not Resolved]
  - Joint injury [Unknown]
  - Osteonecrosis of jaw [Unknown]
  - Tooth disorder [Unknown]
  - Tooth disorder [Unknown]
  - Anaemia [Unknown]
  - Arthritis [Unknown]
  - Dental caries [Unknown]
  - Gingival bleeding [Unknown]
  - Cardiac murmur [Unknown]
  - Tooth disorder [Unknown]
  - Osteopenia [Unknown]
  - Anxiety [Recovered/Resolved]
  - Feeling jittery [Unknown]
  - Adverse drug reaction [Unknown]
  - Palpitations [Unknown]
  - Cardiomyopathy [Recovered/Resolved]
  - Thalassaemia beta [Unknown]
  - Adverse drug reaction [Unknown]
  - Mitral valve incompetence [Unknown]
  - Iliotibial band syndrome [Unknown]
  - Patellofemoral pain syndrome [Unknown]
  - Bundle branch block left [Unknown]
  - Dermal cyst [Unknown]
  - Tooth loss [Unknown]
  - Osteoarthritis [Unknown]
  - Chronic obstructive pulmonary disease [Unknown]
  - Headache [Unknown]
  - Dizziness [Unknown]
